FAERS Safety Report 5738947-6 (Version None)
Quarter: 2008Q2

REPORT INFORMATION
  Report Type: 
  Country: None (occurrence: None)
  Receive Date: 20080515
  Receipt Date: 20080506
  Transmission Date: 20081010
  Serious: Yes (Congenital Anomaly, Other)
  Sender: FDA-Public Use
  Company Number: GB-ABBOTT-08P-167-0450507-00

PATIENT
  Age: 1 Day
  Sex: Female

DRUGS (1)
  1. VALPROIC ACID [Suspect]
     Indication: DRUG EXPOSURE DURING PREGNANCY
     Route: 064

REACTIONS (15)
  - CONGENITAL HAIR DISORDER [None]
  - CONGENITAL NAIL DISORDER [None]
  - CONGENITAL NOSE MALFORMATION [None]
  - DRUG EXPOSURE DURING PREGNANCY [None]
  - DYSMORPHISM [None]
  - FEBRILE CONVULSION [None]
  - FOETAL ANTICONVULSANT SYNDROME [None]
  - HYPERMETROPIA [None]
  - JAUNDICE [None]
  - LIP DISORDER [None]
  - NAIL DISORDER [None]
  - OTITIS MEDIA [None]
  - PREMATURE LABOUR [None]
  - SKULL MALFORMATION [None]
  - STRABISMUS [None]
